FAERS Safety Report 16661660 (Version 1)
Quarter: 2019Q3

REPORT INFORMATION
  Report Type: Report from Study
  Country: ES (occurrence: ES)
  Receive Date: 20190802
  Receipt Date: 20190802
  Transmission Date: 20191004
  Serious: Yes (Death, Hospitalization)
  Sender: FDA-Public Use
  Company Number: ES-PFIZER INC-2019327694

PATIENT
  Age: 96 Year
  Sex: Male

DRUGS (6)
  1. FUROSEMIDE. [Suspect]
     Active Substance: FUROSEMIDE
     Dosage: 80 MG, DAILY (40 MG, 1-0-1-0)
     Route: 048
     Dates: end: 20180709
  2. SINTROM [Concomitant]
     Active Substance: ACENOCOUMAROL
     Dosage: 1 MG, 1X/DAY (1 TABLET EVERY 24 HOURS)
     Route: 048
  3. SPIRONOLACTONE. [Suspect]
     Active Substance: SPIRONOLACTONE
     Dosage: 1 DF, 1X/DAY (EVERY 24 HOURS, 1-0-0)
     Route: 048
     Dates: end: 20180709
  4. LOSARTAN. [Suspect]
     Active Substance: LOSARTAN
     Indication: HYPERTENSION
     Dosage: 25 MG, 1X/DAY (EVERY 24 HOURS, 1-0-0)
     Route: 048
     Dates: end: 20180709
  5. DEPRAX [SERTRALINE HYDROCHLORIDE] [Concomitant]
     Active Substance: SERTRALINE HYDROCHLORIDE
     Dosage: 100 MG, 1X/DAY (EVERY 24 HOURS, 0-0-1)
     Route: 048
  6. SEGURIL [Suspect]
     Active Substance: FUROSEMIDE
     Dosage: 60 MG, DAILY (20 MG AT BREAKFAST, LUNCH AND DINNER 09H, 13H, 20H)
     Route: 042
     Dates: start: 20180710

REACTIONS (1)
  - Syncope [Recovered/Resolved]

NARRATIVE: CASE EVENT DATE: 20180708
